FAERS Safety Report 17719353 (Version 1)
Quarter: 2020Q2

REPORT INFORMATION
  Report Type: Spontaneous
  Country: US (occurrence: US)
  Receive Date: 20200428
  Receipt Date: 20200428
  Transmission Date: 20200714
  Serious: No
  Sender: FDA-Public Use
  Company Number: US-ABBVIE-20K-163-3316157-00

PATIENT
  Sex: Female

DRUGS (1)
  1. SKYRIZI [Suspect]
     Active Substance: RISANKIZUMAB-RZAA
     Indication: PSORIASIS
     Route: 058

REACTIONS (6)
  - Swelling face [Unknown]
  - Neck pain [Unknown]
  - Lymphadenopathy [Unknown]
  - Facial pain [Unknown]
  - Lymph node pain [Unknown]
  - Swelling [Unknown]

NARRATIVE: CASE EVENT DATE: 2020
